FAERS Safety Report 11768897 (Version 1)
Quarter: 2015Q4

REPORT INFORMATION
  Report Type: Report from Study
  Country: HU (occurrence: HU)
  Receive Date: 20151123
  Receipt Date: 20151123
  Transmission Date: 20160304
  Serious: Yes (Hospitalization, Other)
  Sender: FDA-Public Use
  Company Number: HU-ABBVIE-15P-076-1503085-00

PATIENT
  Sex: Male

DRUGS (3)
  1. DORMICUM [Concomitant]
     Active Substance: MIDAZOLAM\MIDAZOLAM HYDROCHLORIDE
     Indication: SLEEP DISORDER
     Dosage: 4 TABLETS AT A TIME
     Route: 048
  2. DUODOPA [Suspect]
     Active Substance: CARBIDOPA\LEVODOPA
     Indication: PARKINSON^S DISEASE
     Dosage: MORNING: 5,5ML; CONTINUOUS DOSE: 5.7ML/H; EXTRA DOSE: 2ML
     Route: 050
     Dates: start: 20130422
  3. MADOPAR [Concomitant]
     Active Substance: BENSERAZIDE HYDROCHLORIDE\LEVODOPA
     Indication: PARKINSON^S DISEASE
     Dosage: 100/25MG; 10-15 TABLETS A DAY
     Route: 048
     Dates: start: 2003

REACTIONS (5)
  - Drug dependence [Unknown]
  - Overdose [Not Recovered/Not Resolved]
  - Dyskinesia [Not Recovered/Not Resolved]
  - Panic attack [Not Recovered/Not Resolved]
  - Anxiety [Not Recovered/Not Resolved]
